FAERS Safety Report 6562871-2 (Version None)
Quarter: 2010Q1

REPORT INFORMATION
  Report Type: 
  Country: None (occurrence: None)
  Receive Date: 20100130
  Receipt Date: 20091125
  Transmission Date: 20100710
  Serious: No
  Sender: FDA-Public Use
  Company Number: US-ABBOTT-09P-163-0611345-00

PATIENT
  Sex: Male
  Weight: 118.95 kg

DRUGS (2)
  1. HUMIRA [Suspect]
     Indication: RHEUMATOID ARTHRITIS
     Dates: start: 20040501, end: 20071001
  2. HUMIRA [Suspect]
     Route: 058
     Dates: start: 20071001

REACTIONS (1)
  - DRUG INEFFECTIVE [None]
